FAERS Safety Report 7638645-8 (Version None)
Quarter: 2011Q3

REPORT INFORMATION
  Report Type: 
  Country: None (occurrence: None)
  Receive Date: 20110727
  Receipt Date: 20110725
  Transmission Date: 20111222
  Serious: Yes (Hospitalization)
  Sender: FDA-Public Use
  Company Number: US-ROXANE LABORATORIES, INC.-2011-RO-01060RO

PATIENT
  Age: 62 Year
  Sex: Female
  Weight: 66 kg

DRUGS (10)
  1. BISACODYL [Concomitant]
     Route: 048
     Dates: start: 20101228
  2. POTASSIUM CHLORIDE [Concomitant]
     Dosage: 20 MEQ
     Route: 048
  3. CRIZOTINIB [Suspect]
     Indication: NON-SMALL CELL LUNG CANCER
     Dosage: 400 MG
     Route: 048
     Dates: start: 20100222
  4. PREDNISONE TAB [Suspect]
     Route: 048
  5. CALCIUM ACETATE [Concomitant]
     Dosage: 500 MG
     Route: 048
  6. SENNA [Concomitant]
     Dates: start: 20101212
  7. VITAMIN D [Concomitant]
     Dates: start: 20080428
  8. LOVENOX [Concomitant]
     Route: 058
     Dates: start: 20100820
  9. GLYCERIN [Concomitant]
     Route: 048
  10. FUROSEMIDE [Concomitant]
     Dosage: 20 MG
     Route: 048
     Dates: start: 20100820

REACTIONS (5)
  - DYSPHAGIA [None]
  - VOMITING [None]
  - NAUSEA [None]
  - OESOPHAGEAL PAIN [None]
  - OESOPHAGEAL CANDIDIASIS [None]
